FAERS Safety Report 6863843-0 (Version None)
Quarter: 2010Q3

REPORT INFORMATION
  Report Type: 
  Country: None (occurrence: None)
  Receive Date: 20100721
  Receipt Date: 20080310
  Transmission Date: 20110219
  Serious: No
  Sender: FDA-Public Use
  Company Number: US-PFIZER INC-2008023263

PATIENT
  Sex: Female
  Weight: 79.5 kg

DRUGS (3)
  1. CHANTIX [Suspect]
     Indication: SMOKING CESSATION THERAPY
     Dates: start: 20080201, end: 20080309
  2. LISINOPRIL [Concomitant]
     Dates: start: 20060101
  3. TRAZODONE HYDROCHLORIDE [Concomitant]

REACTIONS (6)
  - ABNORMAL DREAMS [None]
  - DEPRESSION [None]
  - HEADACHE [None]
  - NAUSEA [None]
  - SINUS DISORDER [None]
  - SOMNAMBULISM [None]
